FAERS Safety Report 5664229-7 (Version None)
Quarter: 2008Q1

REPORT INFORMATION
  Report Type: 
  Country: None (occurrence: None)
  Receive Date: 20080314
  Receipt Date: 20080306
  Transmission Date: 20080703
  Serious: Yes (Other)
  Sender: FDA-Public Use
  Company Number: US-GILEAD-2008-0015580

PATIENT
  Sex: Female
  Weight: 64.922 kg

DRUGS (12)
  1. LETAIRIS [Suspect]
     Indication: COR PULMONALE CHRONIC
     Route: 048
     Dates: start: 20070830
  2. REVATIO [Concomitant]
     Route: 048
  3. VENTAVIS [Concomitant]
     Dosage: 6-9 X D
     Route: 055
  4. COUMADIN [Concomitant]
     Route: 048
  5. K-DUR 10 [Concomitant]
     Route: 048
  6. BL GARLIC [Concomitant]
     Route: 048
  7. DEMADEX [Concomitant]
     Route: 048
  8. CALTRATE [Concomitant]
     Route: 048
  9. ATIVAN [Concomitant]
     Route: 048
  10. AROMASIN [Concomitant]
     Route: 048
  11. SYNTHROID [Concomitant]
     Route: 048
  12. TRIAMTERENE AND HYDROCHLOROTHIAZIDE [Concomitant]
     Dosage: 75/50 MG
     Route: 048

REACTIONS (1)
  - LIVER FUNCTION TEST ABNORMAL [None]
